FAERS Safety Report 20729597 (Version 9)
Quarter: 2023Q1

REPORT INFORMATION
  Report Type: Report from Study
  Country: GB (occurrence: GB)
  Receive Date: 20220420
  Receipt Date: 20230130
  Transmission Date: 20230418
  Serious: Yes (Hospitalization, Other)
  Sender: FDA-Public Use
  Company Number: GB-CELLTRION HEALTHCARE HUNGARY KFT-2020GB035202

PATIENT
  Age: 46 Year
  Sex: Female

DRUGS (258)
  1. TRASTUZUMAB [Suspect]
     Active Substance: TRASTUZUMAB
     Indication: Breast cancer metastatic
     Dosage: 600 MG, EVERY 3 WEEKS START DATE 20-APR-2015
     Route: 042
  2. TRASTUZUMAB [Suspect]
     Active Substance: TRASTUZUMAB
     Indication: Breast cancer
     Dosage: UNK, (DOSE FORM: 230)
     Route: 065
  3. TRASTUZUMAB [Suspect]
     Active Substance: TRASTUZUMAB
     Indication: HER2 positive breast cancer
     Dosage: 600 MG, TIW/EVERY 3 WEEKS (DOSE FORM: 230) START
     Route: 042
  4. TRASTUZUMAB [Suspect]
     Active Substance: TRASTUZUMAB
     Dosage: 600 MILLIGRAM, Q3W, (DOSE FORM: 293)
     Route: 042
  5. TRASTUZUMAB [Suspect]
     Active Substance: TRASTUZUMAB
     Dosage: 600 MILLIGRAM, Q3W, (DOSE FORM: 230) START DAT
     Route: 042
  6. TRASTUZUMAB [Suspect]
     Active Substance: TRASTUZUMAB
     Dosage: 840 MILLIGRAM, Q3W, (DOSE FORM: 293) START DATE 2
     Route: 042
  7. TRASTUZUMAB [Suspect]
     Active Substance: TRASTUZUMAB
     Dosage: 1500 MILLIGRAM, Q3W, (500 MG 3/WEEKS START DATE 2
     Route: 042
  8. TRASTUZUMAB [Suspect]
     Active Substance: TRASTUZUMAB
     Dosage: 500 MILLIGRAM, Q3W,  (DOSE FORM: 293) START DATE
     Route: 042
  9. TRASTUZUMAB [Suspect]
     Active Substance: TRASTUZUMAB
     Dosage: 500 MG, Q3WK/EVERY 3 WEEKS (DOSE FORM: 230) STAR
     Route: 042
  10. TRASTUZUMAB [Suspect]
     Active Substance: TRASTUZUMAB
     Dosage: 840 MILLIGRAM, Q3W
     Route: 042
  11. TRASTUZUMAB [Suspect]
     Active Substance: TRASTUZUMAB
     Dosage: 150 MILLIGRAM, 1500 MILLIGRAM, Q3WK
     Route: 042
     Dates: start: 20171227
  12. TRASTUZUMAB [Suspect]
     Active Substance: TRASTUZUMAB
     Dosage: 1500 MILLIGRAM, 500 MG 3/WEEKS
     Route: 042
     Dates: start: 20171227
  13. TRASTUZUMAB [Suspect]
     Active Substance: TRASTUZUMAB
     Dosage: 1800 MILLIGRAM, 600 MG, Q3W, (CUMULATIVE DOSE
     Route: 042
     Dates: start: 20150420
  14. TRASTUZUMAB [Suspect]
     Active Substance: TRASTUZUMAB
     Dosage: 600 MILLIGRAM, 600 MG, EVERY 3 WEEKS (DOSE FORM: 230)
     Route: 042
     Dates: start: 20150420
  15. TRASTUZUMAB [Suspect]
     Active Substance: TRASTUZUMAB
     Dosage: 500 MILLIGRAM, 500 MG, Q3WK/EVERY 3 WEEKS
     Route: 042
     Dates: start: 20171227
  16. TRASTUZUMAB [Suspect]
     Active Substance: TRASTUZUMAB
     Dosage: 840 MILLIGRAM, 840 MILLIGRAM, Q3WK
     Route: 042
     Dates: start: 20150420
  17. TRASTUZUMAB [Suspect]
     Active Substance: TRASTUZUMAB
     Dosage: 500 MILLIGRAM, 500 MILLIGRAM, Q3WK
     Route: 042
     Dates: start: 20171227
  18. TRASTUZUMAB [Suspect]
     Active Substance: TRASTUZUMAB
     Dosage: 600 MILLIGRAM, 600 MG, Q3WK/EVERY 3 WEEKS
     Route: 042
  19. TRASTUZUMAB [Suspect]
     Active Substance: TRASTUZUMAB
     Dosage: 1800 MILLIGRAM, QW, 600 MG, EVERY 3 WEEKS
     Route: 042
     Dates: start: 20150420
  20. DOCETAXEL [Suspect]
     Active Substance: DOCETAXEL
     Indication: Breast cancer
     Dosage: 150 MG, Q2WK/EVERY 2 WEEKS START DATE 21-APR-2015
     Route: 042
     Dates: end: 20150421
  21. DOCETAXEL [Suspect]
     Active Substance: DOCETAXEL
     Indication: Breast cancer female
     Dosage: 150 MG EVERY 3 WEEKS; 150 MG, TIW START DATE 21-APR-2015
     Route: 042
     Dates: end: 20150421
  22. DOCETAXEL [Suspect]
     Active Substance: DOCETAXEL
     Indication: Breast cancer metastatic
     Dosage: 150 MG, TIW (EVERY 3 WEEKS) START DATE 21-APR-2015
     Route: 042
     Dates: end: 20150421
  23. DOCETAXEL [Suspect]
     Active Substance: DOCETAXEL
     Indication: HER2 positive breast cancer
     Dosage: 150 MG, TIW (EVERY 3 WEEKS) START DATE 21-APR-2015
     Route: 042
  24. DOCETAXEL [Suspect]
     Active Substance: DOCETAXEL
     Dosage: 150 MG, Q2WK/EVERY 2 WEEKS (DOSE FORM: 16, 17) START DATE 21-APR-2015
     Route: 042
     Dates: end: 20150421
  25. DOCETAXEL [Suspect]
     Active Substance: DOCETAXEL
     Dosage: 150 MG EVERY 3 WEEKS START DATE 21-APR-2015
     Route: 042
     Dates: end: 20150421
  26. DOCETAXEL [Suspect]
     Active Substance: DOCETAXEL
     Dosage: 120 MG, EVERY 3 WEEKS (DOSE FORM: 16) START DATE 12-MAY-2015
     Route: 042
     Dates: end: 20150512
  27. DOCETAXEL [Suspect]
     Active Substance: DOCETAXEL
     Dosage: 120 MILLIGRAM, Q3W, START DATE 12-MAY-2015
     Route: 042
     Dates: end: 20150804
  28. DOCETAXEL [Suspect]
     Active Substance: DOCETAXEL
     Dosage: 120 MILLIGRAM, Q3W (120 MG, TIW (EVERY 3 WEEKS)) START DATE 12-MAY-2015
     Route: 042
  29. DOCETAXEL [Suspect]
     Active Substance: DOCETAXEL
     Dosage: 120 MG, EVERY 3 WEEKS (DOSE FORM: 16) START DATE 04-AUG-2015
     Route: 042
  30. DOCETAXEL [Suspect]
     Active Substance: DOCETAXEL
     Dosage: 360 MILLIGRAM, QW CUMULATIVE DOSE: 125.71429 MG START DATE 12-MAY-2015
     Route: 042
     Dates: end: 20150804
  31. DOCETAXEL [Suspect]
     Active Substance: DOCETAXEL
     Dosage: 300 MILLIGRAM, QW (START 21-APR-2015)
     Route: 042
  32. DOCETAXEL [Suspect]
     Active Substance: DOCETAXEL
     Dosage: 240 MG, QW (START 12-MAY-2015 AND STOP 04-AUG-2015))
     Route: 042
  33. DOCETAXEL [Suspect]
     Active Substance: DOCETAXEL
     Dosage: 120 MILLIGRAM, 120 MG, EVERY 3 WEEKS
     Route: 042
     Dates: start: 20150512, end: 20150512
  34. DOCETAXEL [Suspect]
     Active Substance: DOCETAXEL
     Dosage: 150 MILLIGRAM, 150 MG, Q2WK/EVERY 2 WEEKS
     Route: 042
     Dates: start: 20150421, end: 20150421
  35. DOCETAXEL [Suspect]
     Active Substance: DOCETAXEL
     Dosage: 150 MILLIGRAM, 150 MG, TIW (EVERY 3 WEEKS)
     Route: 042
     Dates: start: 20150421, end: 20150421
  36. DOCETAXEL [Suspect]
     Active Substance: DOCETAXEL
     Dosage: 150 MILLIGRAM, 150 MG, EVERY 3 WEEKS
     Route: 042
     Dates: start: 20150421, end: 20150421
  37. DOCETAXEL [Suspect]
     Active Substance: DOCETAXEL
     Dosage: 300 MILLIGRAM, 300 MILLIGRAM, QWK CUMULATIVE DOSE
     Route: 042
     Dates: start: 20150421, end: 20150421
  38. DOCETAXEL [Suspect]
     Active Substance: DOCETAXEL
     Dosage: 150 MILLIGRAM, 150 MG, TIW (EVERY 3 WEEKS)
     Route: 042
     Dates: start: 20150421, end: 20150421
  39. DOCETAXEL [Suspect]
     Active Substance: DOCETAXEL
     Dosage: 150 MG, Q2WK/EVERY 2 WEEKSK
     Route: 042
  40. DOCETAXEL [Suspect]
     Active Substance: DOCETAXEL
     Dosage: 150 MILLIGRAM, Q2W,150 MG, Q2WK/EVERY 2 WEEKS
     Route: 042
     Dates: start: 20150421, end: 20150421
  41. DOCETAXEL [Suspect]
     Active Substance: DOCETAXEL
     Dosage: 120 MILLIGRAM, 120 MG, EVERY 3 WEEKS (DOSE FORM: 16)
     Route: 042
     Dates: start: 20150804, end: 20150804
  42. DOCETAXEL [Suspect]
     Active Substance: DOCETAXEL
     Dosage: 120 MILLIGRAM, 120 MG, Q3W/EVERY 3 WEEKS
     Route: 042
     Dates: start: 20150512, end: 20150804
  43. DOCETAXEL [Suspect]
     Active Substance: DOCETAXEL
     Dosage: 150 MILLIGRAM, 150 MG EVERY 3 WEEKS; 150 MG
     Route: 042
     Dates: start: 20150421, end: 20150421
  44. DOCETAXEL [Suspect]
     Active Substance: DOCETAXEL
     Dosage: 120 MILLIGRAM, 120 MG, TIW (EVERY 3 WEEKS)
     Route: 042
     Dates: start: 20150512
  45. DOCETAXEL [Suspect]
     Active Substance: DOCETAXEL
     Dosage: 120 MILLIGRAM, 150 MG, Q2WK/EVERY 2 WEEKS
     Route: 042
     Dates: start: 20150421, end: 20150421
  46. DOCETAXEL [Suspect]
     Active Substance: DOCETAXEL
     Dosage: 240 MILLIGRAM, 240 MILLIGRAM, QWK CUMULATIVE
     Route: 042
     Dates: start: 20150512, end: 20150804
  47. DOCETAXEL [Suspect]
     Active Substance: DOCETAXEL
     Dosage: 120 MILLIGRAM,120 MG, Q3W/EVERY 3 WEEKS
     Route: 042
     Dates: start: 20150512, end: 20150804
  48. PERTUZUMAB [Suspect]
     Active Substance: PERTUZUMAB
     Indication: Breast cancer
     Dosage: 840 MILLIGRAM, Q3W START DATE 20-APR-2015
     Route: 042
  49. PERTUZUMAB [Suspect]
     Active Substance: PERTUZUMAB
     Indication: Breast cancer metastatic
     Dosage: 420 MG, EVERY 3 WEEKS START DATE 20-APR-2015
     Route: 042
  50. PERTUZUMAB [Suspect]
     Active Substance: PERTUZUMAB
     Indication: HER2 positive breast cancer
     Dosage: 1260 MILLIGRAM, QW, (840 MG, 3/WEEKS) START DATE 20-APR-2015
     Route: 042
  51. PERTUZUMAB [Suspect]
     Active Substance: PERTUZUMAB
     Dosage: 420 MG, EVERY WEEKS (DOSE FORM:231) START DATE 20-APR-2015
     Route: 042
  52. PERTUZUMAB [Suspect]
     Active Substance: PERTUZUMAB
     Dosage: 420 MG, Q3WK/EVERY 3 WEEKS (DOSE FORM: 231) START DATE 20-APR-2015
     Route: 042
  53. PERTUZUMAB [Suspect]
     Active Substance: PERTUZUMAB
     Dosage: 1680 MILLIGRAM, QW START DATE 20-APR-2015
     Route: 042
  54. PERTUZUMAB [Suspect]
     Active Substance: PERTUZUMAB
     Dosage: 960 MILLIGRAM
     Route: 042
  55. TAXOTERE [Suspect]
     Active Substance: DOCETAXEL
     Indication: HER2 positive breast cancer
     Dosage: 240 MILLIGRAM, QW START DATE 12-MAY-2015
     Route: 042
     Dates: end: 20150804
  56. TAXOTERE [Suspect]
     Active Substance: DOCETAXEL
     Dosage: 300 MILLIGRAM, QW START DATE 21-APR-2015
     Route: 042
     Dates: end: 20150421
  57. TAXOTERE [Suspect]
     Active Substance: DOCETAXEL
     Dosage: 150 MILLIGRAM, Q3W START DATE 21-APR-2015
     Route: 042
     Dates: end: 20150421
  58. TAXOTERE [Suspect]
     Active Substance: DOCETAXEL
     Dosage: 120 MILLIGRAM, Q3W START DATE 12-MAY-2015
     Route: 042
     Dates: end: 20150804
  59. TAXOTERE [Suspect]
     Active Substance: DOCETAXEL
     Dosage: 300 MILLIGRAM,, QW, LIGRAM, Q3W (
     Route: 042
     Dates: start: 20150421, end: 20150421
  60. TAXOTERE [Suspect]
     Active Substance: DOCETAXEL
     Dosage: 240 MILLIGRAM, QW, ~120 MILLIGRAM, Q3W
     Route: 042
     Dates: start: 20150512, end: 20150804
  61. LOPERAMIDE [Concomitant]
     Active Substance: LOPERAMIDE
     Indication: Diarrhoea
     Dosage: 2 MG EVERY 1 DAY AS NEEDED  START DATE 16-MAY-2015
     Route: 048
     Dates: start: 20150516, end: 20150516
  62. TAMIFLU [Concomitant]
     Active Substance: OSELTAMIVIR PHOSPHATE
     Indication: Influenza
     Dosage: 150 MILLIGRAM, QD START DATE 19-FEB-2018
     Route: 048
     Dates: end: 20180226
  63. TAMIFLU [Concomitant]
     Active Substance: OSELTAMIVIR PHOSPHATE
     Dosage: 75 MILLIGRAM, QD, START DATE 19-FEB-2018
     Route: 048
     Dates: end: 20180226
  64. TAMIFLU [Concomitant]
     Active Substance: OSELTAMIVIR PHOSPHATE
     Dosage: 75 MG START DATE 26-FEB-2018
     Route: 048
  65. TAMIFLU [Concomitant]
     Active Substance: OSELTAMIVIR PHOSPHATE
     Dosage: 150 MILLIGRAM, QD START DATE 26-FEB-2018
     Route: 048
  66. TAMIFLU [Concomitant]
     Active Substance: OSELTAMIVIR PHOSPHATE
     Dosage: 75 MILLIGRAM, 75 MILLIGRAM, QD CUMULATIVE DOSE
     Route: 048
     Dates: start: 20180219, end: 20180226
  67. TAMIFLU [Concomitant]
     Active Substance: OSELTAMIVIR PHOSPHATE
     Dosage: 150 MILLIGRAM, DOSAGE TEXT: 150 MILLIGRAM, QD
     Route: 048
     Dates: start: 20180226
  68. TAMIFLU [Concomitant]
     Active Substance: OSELTAMIVIR PHOSPHATE
     Dosage: 150 MILLIGRAM,150 MILLIGRAM, QD CUMULATIVE DOSE
     Route: 048
     Dates: start: 20180219, end: 20180226
  69. PFIZER-BIONTECH COVID-19 VACCINE [Concomitant]
     Active Substance: TOZINAMERAN
     Dosage: UNK
     Route: 065
  70. PFIZER-BIONTECH COVID-19 VACCINE [Concomitant]
     Active Substance: TOZINAMERAN
     Dosage: 30 MICROGRAM, QD, EVERY 1 DAY (OTHER) START DATE 04-FEB-2021
     Route: 030
     Dates: end: 20210204
  71. PFIZER-BIONTECH COVID-19 VACCINE [Concomitant]
     Active Substance: TOZINAMERAN
     Dosage: 30 MICROGRAM, QD, EVERY 1 DAY (OTHER) START DATE 22-APR-2021
     Route: 030
     Dates: end: 20210422
  72. CALCEOS [Concomitant]
     Active Substance: CALCIUM CARBONATE\CHOLECALCIFEROL
     Indication: Product used for unknown indication
     Dosage: 1 TABLET, QD START DATE 13-JUL-2015
     Route: 048
  73. CALCEOS [Concomitant]
     Active Substance: CALCIUM CARBONATE\CHOLECALCIFEROL
     Dosage: UNK, 1 QD/EVERY 1 DAY START DATE 13-JUL-2015
     Route: 048
     Dates: end: 20150824
  74. CALCEOS [Concomitant]
     Active Substance: CALCIUM CARBONATE\CHOLECALCIFEROL
     Dosage: 1 DOSAGE FORM, QD START DATE 13-JUL-2015
     Route: 048
     Dates: end: 20150824
  75. CALCEOS [Concomitant]
     Active Substance: CALCIUM CARBONATE\CHOLECALCIFEROL
     Dosage: UNK, UNK UNK, QD
     Route: 048
     Dates: start: 20150713, end: 20150824
  76. CALCEOS [Concomitant]
     Active Substance: CALCIUM CARBONATE\CHOLECALCIFEROL
     Dosage: 1 DOSAGE FORM, 1 DF 1 EVERY 1 DAY
     Route: 048
     Dates: start: 20150713, end: 20150824
  77. CALCEOS [Concomitant]
     Active Substance: CALCIUM CARBONATE\CHOLECALCIFEROL
     Dosage: UNK, UNK, 1 TABLET 1 QD/EVERY 1 DAY (DOSE FORM: 245)
     Route: 048
     Dates: start: 20150713
  78. METHYL SALICYLATE [Concomitant]
     Active Substance: METHYL SALICYLATE
     Indication: Product used for unknown indication
     Dosage: UNK, PRN (AS NECESSARY) START DATE 29-DEC-2016
     Route: 048
  79. METHYL SALICYLATE [Concomitant]
     Active Substance: METHYL SALICYLATE
     Dosage: UNK, PRN (AS NECESSARY) START DATE 29-DEC-2016
     Route: 065
  80. METHYL SALICYLATE [Concomitant]
     Active Substance: METHYL SALICYLATE
     Dosage: UNK, UNK UNK, PRN; AS NECESSARY
     Route: 065
     Dates: start: 20161229
  81. METHYL SALICYLATE [Concomitant]
     Active Substance: METHYL SALICYLATE
     Dosage: UNK, UNK UNK, AS NECESSARY
     Route: 048
     Dates: start: 20161229
  82. METHYL SALICYLATE [Concomitant]
     Active Substance: METHYL SALICYLATE
     Dosage: UNK
     Route: 065
  83. CALCIUM CARBONATE\CHOLECALCIFEROL [Concomitant]
     Active Substance: CALCIUM CARBONATE\CHOLECALCIFEROL
     Dosage: 1 TABLET, BID START DATE 23-JUN-2015
     Route: 048
     Dates: end: 20150625
  84. CALCIUM CARBONATE\CHOLECALCIFEROL [Concomitant]
     Active Substance: CALCIUM CARBONATE\CHOLECALCIFEROL
     Dosage: UNK, BID START DATE 23-JUN-2015
     Route: 048
     Dates: end: 20150625
  85. CALCIUM CARBONATE\CHOLECALCIFEROL [Concomitant]
     Active Substance: CALCIUM CARBONATE\CHOLECALCIFEROL
     Dosage: 1 EVERY 1 DAY (1 TABLET), QD START DATE 23-JUN-2015
     Route: 048
     Dates: end: 20150625
  86. CALCIUM CARBONATE\CHOLECALCIFEROL [Concomitant]
     Active Substance: CALCIUM CARBONATE\CHOLECALCIFEROL
     Dosage: EVERY 12 HR, BID START DATE 23-JUN-2015
     Route: 048
     Dates: end: 20150625
  87. CALCIUM CARBONATE\CHOLECALCIFEROL [Concomitant]
     Active Substance: CALCIUM CARBONATE\CHOLECALCIFEROL
     Dosage: 2 DOSAGE FORM, QD START DATE 23-JUN-2015
     Route: 048
     Dates: end: 20150625
  88. CALCIUM CARBONATE\CHOLECALCIFEROL [Concomitant]
     Active Substance: CALCIUM CARBONATE\CHOLECALCIFEROL
     Dosage: 0.5 MILLIGRAM, QD
     Route: 048
  89. CALCIUM CARBONATE\CHOLECALCIFEROL [Concomitant]
     Active Substance: CALCIUM CARBONATE\CHOLECALCIFEROL
     Dosage: 1 DOSAGE FORM, 12HR, BID START DATE 23-JUN-2015
     Route: 048
     Dates: end: 20150625
  90. LANOLIN\LIGHT MINERAL OIL\PARAFFIN [Concomitant]
     Active Substance: LANOLIN\LIGHT MINERAL OIL\PARAFFIN
     Indication: Pruritus
     Dosage: UNK, PRN (1 TABLESPOON); AS NECESSARY (DOSE: 17) 15-MAY-2015
     Route: 061
  91. LANOLIN\LIGHT MINERAL OIL\PARAFFIN [Concomitant]
     Active Substance: LANOLIN\LIGHT MINERAL OIL\PARAFFIN
     Dosage: 1 TABLESPOON START DATE 15-MAY-2015
     Route: 061
  92. LANOLIN\LIGHT MINERAL OIL\PARAFFIN [Concomitant]
     Active Substance: LANOLIN\LIGHT MINERAL OIL\PARAFFIN
     Dosage: UNK, (AS NECESSARY) START DATE 15-MAY-2015
     Route: 061
  93. VASELINE PURE [Concomitant]
     Active Substance: PETROLATUM
     Indication: Epistaxis
     Dosage: UNK START DATE 12-NOV-2018
     Route: 061
  94. VASELINE PURE [Concomitant]
     Active Substance: PETROLATUM
     Dosage: UNK, AS NECESSARY START DATE 16-AUG-2016
     Route: 061
  95. VASELINE PURE [Concomitant]
     Active Substance: PETROLATUM
     Dosage: 1 TBSP (TABLESPOON START DATE 16-AUG-2016
     Route: 061
  96. VASELINE PURE [Concomitant]
     Active Substance: PETROLATUM
     Dosage: UNK
     Route: 065
  97. VASELINE PURE [Concomitant]
     Active Substance: PETROLATUM
     Dosage: UNK
     Route: 061
     Dates: start: 20160816
  98. ACYCLOVIR [Concomitant]
     Active Substance: ACYCLOVIR
     Indication: Genital herpes
     Dosage: 400 MG, QID (DOSE FORM: 245), START DATE 11-FEB-2017
     Route: 048
     Dates: end: 20170218
  99. ACYCLOVIR [Concomitant]
     Active Substance: ACYCLOVIR
     Dosage: 800 MILLIGRAM, QD, START DATE 11-FEB-2017
     Route: 048
     Dates: end: 20170218
  100. ACYCLOVIR [Concomitant]
     Active Substance: ACYCLOVIR
     Dosage: 200 MILLIGRAM, QD START DATE 11-FEB-2017
     Route: 048
     Dates: start: 20170211, end: 20170218
  101. ACYCLOVIR [Concomitant]
     Active Substance: ACYCLOVIR
     Dosage: 200 MILLIGRAM START DATE 11-FEB-2017
     Route: 048
     Dates: end: 20170218
  102. ACYCLOVIR [Concomitant]
     Active Substance: ACYCLOVIR
     Dosage: 200 MILLIGRAM, QID START DATE 11-FEB-2017
     Route: 048
     Dates: end: 20170218
  103. ACYCLOVIR [Concomitant]
     Active Substance: ACYCLOVIR
     Dosage: 200 MILLIGRAM START DATE: 11-FEB-2017
     Route: 065
     Dates: end: 20170218
  104. Aqueous [Concomitant]
     Indication: Eczema
     Dosage: UNK START DATE 12-NOV-2018
     Route: 061
  105. Aqueous [Concomitant]
     Dosage: UNK, PRN (1 AS NEEDED) START DATE 12-NOV-2018
     Route: 061
  106. ENOXAPARIN [Concomitant]
     Active Substance: ENOXAPARIN
     Indication: Influenza
     Dosage: 40 MILLIGRAM START DATE 19-FEB-2018
     Route: 058
     Dates: start: 20180219, end: 20180220
  107. ENOXAPARIN [Concomitant]
     Active Substance: ENOXAPARIN
     Dosage: 40 MILLIGRAM, QD 19-FEB-2018
     Route: 058
     Dates: start: 20180220, end: 20220219
  108. ENOXAPARIN [Concomitant]
     Active Substance: ENOXAPARIN
     Dosage: 40 MILLIGRAM, QD START DATE 20-FEB-2018
     Route: 058
     Dates: start: 20180220
  109. ENOXAPARIN SODIUM [Concomitant]
     Active Substance: ENOXAPARIN SODIUM
     Indication: Product used for unknown indication
     Dosage: 40 MG, QD. EVERY1 DAY START DATE 19-FEB-2018
     Route: 058
     Dates: start: 20180219, end: 20180220
  110. ENOXAPARIN SODIUM [Concomitant]
     Active Substance: ENOXAPARIN SODIUM
     Dosage: 40 MILLIGRAM,40 MG, QD. EVERY1 DAY
     Route: 058
     Dates: start: 20180219, end: 20180220
  111. MEGACE [Concomitant]
     Active Substance: MEGESTROL ACETATE
     Indication: Menopausal symptoms
     Dosage: 80 MG START DATE 01-JUN-2015
     Route: 048
  112. MEGACE [Concomitant]
     Active Substance: MEGESTROL ACETATE
     Dosage: 160 MILLIGRAM, (80 MG BID)  START DATE 01-JUN-2015
     Route: 048
  113. MEGACE [Concomitant]
     Active Substance: MEGESTROL ACETATE
     Dosage: 80 MILLIGRAM, QD
     Route: 048
  114. MEGACE [Concomitant]
     Active Substance: MEGESTROL ACETATE
     Dosage: 80 MILLIGRAM, QOD  START DATE 01-JUN-2015
     Route: 048
  115. AMOXICILLIN\CLAVULANATE POTASSIUM [Concomitant]
     Active Substance: AMOXICILLIN\CLAVULANATE POTASSIUM
     Indication: Influenza
     Dosage: 625 MILLIGRAM, QD START DATE 20-FEB-2018
     Route: 048
     Dates: end: 20180225
  116. AMOXICILLIN\CLAVULANATE POTASSIUM [Concomitant]
     Active Substance: AMOXICILLIN\CLAVULANATE POTASSIUM
     Dosage: 625 MILLIGRAM, Q3W START DATE 25-FEB-2018
     Route: 048
  117. AMOXICILLIN\CLAVULANATE POTASSIUM [Concomitant]
     Active Substance: AMOXICILLIN\CLAVULANATE POTASSIUM
     Dosage: UNK, QD START DATE 20-FEB-2018
     Route: 048
     Dates: end: 20180225
  118. AMOXICILLIN\CLAVULANATE POTASSIUM [Concomitant]
     Active Substance: AMOXICILLIN\CLAVULANATE POTASSIUM
     Dosage: 1875 MILLIGRAM, QD START DATE 20-FEB-2018
     Route: 048
     Dates: end: 20180225
  119. AMOXICILLIN\CLAVULANATE POTASSIUM [Concomitant]
     Active Substance: AMOXICILLIN\CLAVULANATE POTASSIUM
     Dosage: UNK START DATE 20-FEB-2018
     Route: 065
     Dates: end: 20180225
  120. AMOXICILLIN\CLAVULANATE POTASSIUM [Concomitant]
     Active Substance: AMOXICILLIN\CLAVULANATE POTASSIUM
     Dosage: UNK, TID START DATE 20-FEB-2018
     Route: 048
     Dates: end: 20180225
  121. AMOXICILLIN\CLAVULANATE POTASSIUM [Concomitant]
     Active Substance: AMOXICILLIN\CLAVULANATE POTASSIUM
     Dosage: 625 MILLIGRAM, QD,START DATE 20-FEB-2018
     Route: 048
     Dates: end: 20180225
  122. AMOXICILLIN\CLAVULANATE POTASSIUM [Concomitant]
     Active Substance: AMOXICILLIN\CLAVULANATE POTASSIUM
     Dosage: UNK, 3, EVERY 1 DAY START DATE 20-FEB-2018
     Route: 048
     Dates: end: 20180225
  123. AMOXICILLIN\CLAVULANATE POTASSIUM [Concomitant]
     Active Substance: AMOXICILLIN\CLAVULANATE POTASSIUM
     Dosage: 625 MILLIGRAM, Q8H/TID START DATE 20-FEB-2018
     Route: 048
     Dates: end: 20180220
  124. AMOXICILLIN [Concomitant]
     Active Substance: AMOXICILLIN
     Indication: Lower respiratory tract infection
     Dosage: 625 MILLIGRAM, QD START DATE 20-FEB-2018
     Route: 048
     Dates: end: 20180225
  125. AMOXICILLIN [Concomitant]
     Active Substance: AMOXICILLIN
     Indication: Influenza
     Dosage: UNK
     Route: 065
  126. AMOXICILLIN [Concomitant]
     Active Substance: AMOXICILLIN
     Dosage: 500 MILLIGRAM, QD, START DATE 27-DEC-2017
     Route: 048
     Dates: end: 20180102
  127. AMOXICILLIN [Concomitant]
     Active Substance: AMOXICILLIN
     Dosage: 625 MILLIGRAM
     Route: 048
     Dates: start: 20180225
  128. AMOXICILLIN [Concomitant]
     Active Substance: AMOXICILLIN
     Dosage: 1875 UNK, 1875 MILLIGRAM, QD
     Route: 048
     Dates: start: 20180220, end: 20180225
  129. AMOXICILLIN [Concomitant]
     Active Substance: AMOXICILLIN
     Dosage: 1875 UNK, 1875, QD/EVERY 1 DAY
     Route: 048
     Dates: start: 20180225
  130. AMOXICILLIN [Concomitant]
     Active Substance: AMOXICILLIN
     Dosage: 625 MILLIGRAM, 625 MG EVERY 1 DAY
     Route: 048
     Dates: start: 20180220, end: 20180225
  131. AMOXICILLIN [Concomitant]
     Active Substance: AMOXICILLIN
     Dosage: UNK
     Route: 065
  132. AMOXICILLIN [Concomitant]
     Active Substance: AMOXICILLIN
     Dosage: 500 MILLIGRAM, 500 MG, EVERY 1 DAY (
     Route: 042
     Dates: start: 20171227, end: 20180102
  133. ZOPICLONE [Concomitant]
     Active Substance: ZOPICLONE
     Indication: Sleep disorder
     Dosage: 3.75 MILLIGRAM, PRN START DATE 19-OCT-2015
     Route: 048
     Dates: start: 20151019
  134. ZOPICLONE [Concomitant]
     Active Substance: ZOPICLONE
     Dosage: 3.75 MILLIGRAM, HS START DATE 19-OCT-2015
     Route: 048
     Dates: start: 20151019
  135. ZOPICLONE [Concomitant]
     Active Substance: ZOPICLONE
     Dosage: 3.75 MILLIGRAM, QD, HS START DATE 19-OCT-2015
     Route: 048
     Dates: start: 20151019
  136. XGEVA [Concomitant]
     Active Substance: DENOSUMAB
     Dosage: 240 MILLIGRAM, QD, (120 MG, BID) START DATE 15-JAN-2018
     Route: 048
  137. XGEVA [Concomitant]
     Active Substance: DENOSUMAB
     Dosage: 240 MILLIGRAM, QD, (120 MG, BID) START DATE 15-JAN-2018
     Route: 048
  138. XGEVA [Concomitant]
     Active Substance: DENOSUMAB
     Dosage: 120 MILLIGRAM, Q12HR/BID
     Route: 048
  139. XGEVA [Concomitant]
     Active Substance: DENOSUMAB
     Dosage: 120 MILLIGRAM, Q12HR/BID  START DATE 15-JAN-2018
     Route: 048
  140. XGEVA [Concomitant]
     Active Substance: DENOSUMAB
     Dosage: 240 MILLIGRAM, QD  START DATE 15-JAN-2018
     Route: 065
  141. XGEVA [Concomitant]
     Active Substance: DENOSUMAB
     Indication: Product used for unknown indication
     Dosage: 120 MILLIGRAM, MONTHLY START DATE  23-JUN-2015
     Route: 058
     Dates: end: 20170508
  142. XGEVA [Concomitant]
     Active Substance: DENOSUMAB
     Dosage: 120 MILLIGRAM, MONTHLY START DATE  23-JUN-2015
     Route: 058
  143. NAPROXEN [Concomitant]
     Active Substance: NAPROXEN
     Indication: Arthralgia
     Dosage: 500 MILLIGRAM, BID//Q12HR START DATE 18-FEB-2018
     Route: 048
     Dates: end: 20180220
  144. NAPROXEN [Concomitant]
     Active Substance: NAPROXEN
     Indication: Influenza
     Dosage: 500 MILLIGRAM START DATE 18-FEB-2018
     Route: 048
     Dates: end: 20180220
  145. NAPROXEN [Concomitant]
     Active Substance: NAPROXEN
     Dosage: 1000 MILLIGRAM, QD, (500 MG, BID) START DATE 18-FEB-2018
     Route: 048
     Dates: end: 20180220
  146. NAPROXEN [Concomitant]
     Active Substance: NAPROXEN
     Dosage: 250 MILLIGRAM START DATE 2015
     Route: 048
     Dates: end: 20160314
  147. NAPROXEN [Concomitant]
     Active Substance: NAPROXEN
     Dosage: UNK START DATE 2015
     Route: 048
     Dates: end: 20160314
  148. ACETAMINOPHEN [Concomitant]
     Active Substance: ACETAMINOPHEN
     Indication: Influenza
     Dosage: 4 GRAM, QID START DATE 27-APR-2015
     Route: 048
     Dates: start: 20150427, end: 20150505
  149. ACETAMINOPHEN [Concomitant]
     Active Substance: ACETAMINOPHEN
     Indication: Arthralgia
     Dosage: 4 GRAM, QD START DATE 18-FEB-2018
     Route: 048
     Dates: start: 20180218, end: 20180220
  150. ACETAMINOPHEN [Concomitant]
     Active Substance: ACETAMINOPHEN
     Dosage: 1 GRAM, QID START DATE 18-FEB-2018
     Route: 048
     Dates: start: 20180208, end: 20180220
  151. ACETAMINOPHEN [Concomitant]
     Active Substance: ACETAMINOPHEN
     Dosage: 1 GRAM, QID START DATE 27-APR-2015
     Route: 048
     Dates: start: 20150427, end: 20150505
  152. ACETAMINOPHEN [Concomitant]
     Active Substance: ACETAMINOPHEN
     Dosage: 1 GRAM, QID START DATE 20-FEB-2018
     Route: 048
  153. ACETAMINOPHEN [Concomitant]
     Active Substance: ACETAMINOPHEN
     Dosage: 1 GRAM START DATE 20-APR-2015
     Route: 048
     Dates: start: 20150420, end: 20180217
  154. ACETAMINOPHEN [Concomitant]
     Active Substance: ACETAMINOPHEN
     Dosage: 1 GRAM, QID START DATE 27-APR-2015
     Route: 048
     Dates: start: 20150427, end: 20150505
  155. ACETAMINOPHEN [Concomitant]
     Active Substance: ACETAMINOPHEN
     Dosage: 16 GRAM, 4 GRAM, QD CUMULATIVE DOSE TO FIRST REAC
     Route: 048
     Dates: start: 20150427, end: 20150505
  156. ACETAMINOPHEN [Concomitant]
     Active Substance: ACETAMINOPHEN
     Dosage: 1 GRAM, QD
     Route: 048
     Dates: start: 20180218, end: 20180220
  157. ACETAMINOPHEN [Concomitant]
     Active Substance: ACETAMINOPHEN
     Dosage: 4 GRAM, 1 GRAM, QID (DOSE FORM:245; CUMULATIVE DOS
     Route: 048
     Dates: start: 20150427, end: 20180217
  158. ACETAMINOPHEN [Concomitant]
     Active Substance: ACETAMINOPHEN
     Dosage: UNK, ~4 GRAM, QD (DOSE FORM:245; CUMULATIVE DOSE: 4112 G)
     Route: 048
     Dates: start: 20150427
  159. ACETAMINOPHEN [Concomitant]
     Active Substance: ACETAMINOPHEN
     Dosage: UNK, ~1 GRAM, EVERY 0.25/4 DAY (DOSE FORM: 245)/1
     Route: 048
     Dates: start: 20180220
  160. CODEINE PHOSPHATE [Concomitant]
     Active Substance: CODEINE PHOSPHATE
     Indication: Arthralgia
     Dosage: 30 MILLIGRAM, PRN START DATE 16-AUG-2016
     Route: 048
  161. OMEPRAZOLE [Concomitant]
     Active Substance: OMEPRAZOLE
     Indication: Gastritis
     Dosage: 220 MILLIGRAM, QD START DATE 22-JUN-2015
     Route: 048
     Dates: start: 20150622, end: 20150713
  162. OMEPRAZOLE [Concomitant]
     Active Substance: OMEPRAZOLE
     Indication: Gastrooesophageal reflux disease
     Dosage: 20 MILLIGRAM, QD START DATE 22-JUN-2015
     Route: 048
     Dates: start: 20150622, end: 20150713
  163. OMEPRAZOLE [Concomitant]
     Active Substance: OMEPRAZOLE
     Dosage: 20 MILLIGRAM, QD START DATE 22-JUN-2015
     Route: 048
     Dates: start: 20150622
  164. OMEPRAZOLE [Concomitant]
     Active Substance: OMEPRAZOLE
     Dosage: 20 MILLIGRAM, QD START DATE 13-JUL-2015
     Route: 048
  165. OMEPRAZOLE [Concomitant]
     Active Substance: OMEPRAZOLE
     Dosage: 20 MILLIGRAM
     Route: 048
  166. OMEPRAZOLE [Concomitant]
     Active Substance: OMEPRAZOLE
     Dosage: 220 MILLIGRAM. 220 MG EVERY 1 DAY
     Route: 048
     Dates: start: 20150622, end: 20150713
  167. OMEPRAZOLE [Concomitant]
     Active Substance: OMEPRAZOLE
     Dosage: 20 MILLIGRAM, ~20 MILLIGRAM (CUMULATIVE DOSE: 440MG)
     Route: 048
     Dates: start: 20150713
  168. OMEPRAZOLE [Concomitant]
     Active Substance: OMEPRAZOLE
     Dosage: 20 MILLIGRAM, 20 MG, 1X/DAY
     Route: 048
     Dates: start: 20150622
  169. OMEPRAZOLE [Concomitant]
     Active Substance: OMEPRAZOLE
     Dosage: 220 MILLIGRAM, 220 MG QD/EVERY 1 DAY (DOSE FORM: 245)
     Route: 048
     Dates: start: 20150622, end: 20150713
  170. IBUPROFEN [Concomitant]
     Active Substance: IBUPROFEN
     Indication: Spinal pain
     Dosage: 400 MILLIGRAM START DATE 29-DEC-2016
     Route: 048
  171. IBUPROFEN [Concomitant]
     Active Substance: IBUPROFEN
     Dosage: UNK, PRN START DATE 29-DEC-2016
     Route: 048
  172. POLYETHYLENE GLYCOL 3350\POTASSIUM CHLORIDE\SODIUM BICARBONATE\SODIUM [Concomitant]
     Active Substance: POLYETHYLENE GLYCOL 3350\POTASSIUM CHLORIDE\SODIUM BICARBONATE\SODIUM CHLORIDE
     Indication: Influenza
     Dosage: 1 SACHET, BID START DATE 19-FEB-2018
     Route: 048
     Dates: end: 20180220
  173. POLYETHYLENE GLYCOL 3350\POTASSIUM CHLORIDE\SODIUM BICARBONATE\SODIUM [Concomitant]
     Active Substance: POLYETHYLENE GLYCOL 3350\POTASSIUM CHLORIDE\SODIUM BICARBONATE\SODIUM CHLORIDE
     Dosage: UNK UNK, BID, (SOLUTION) START DATE 19-FEB-2018
     Route: 048
     Dates: end: 20180220
  174. POLYETHYLENE GLYCOL 3350\POTASSIUM CHLORIDE\SODIUM BICARBONATE\SODIUM [Concomitant]
     Active Substance: POLYETHYLENE GLYCOL 3350\POTASSIUM CHLORIDE\SODIUM BICARBONATE\SODIUM CHLORIDE
     Dosage: UNK START DATE 19-FEB-2018
     Route: 048
     Dates: end: 20180220
  175. PIPERACILLIN SODIUM\TAZOBACTAM SODIUM [Concomitant]
     Active Substance: PIPERACILLIN SODIUM\TAZOBACTAM SODIUM
     Indication: Influenza
     Dosage: 4.5 GRAM, Q3W/Q8HR START DATE 18-FEB-2018
     Route: 042
     Dates: end: 20180220
  176. PIPERACILLIN SODIUM\TAZOBACTAM SODIUM [Concomitant]
     Active Substance: PIPERACILLIN SODIUM\TAZOBACTAM SODIUM
     Indication: Neutropenic sepsis
     Dosage: 4.5 GRAM, QD START DATE 18-FEB-2018
     Route: 042
     Dates: end: 20180220
  177. PIPERACILLIN SODIUM\TAZOBACTAM SODIUM [Concomitant]
     Active Substance: PIPERACILLIN SODIUM\TAZOBACTAM SODIUM
     Dosage: 13.5 GRAM, TID, (4.5 GRAM, TID) START DATE 18-FEB-2018
     Route: 042
     Dates: end: 20180220
  178. PIPERACILLIN SODIUM\TAZOBACTAM SODIUM [Concomitant]
     Active Substance: PIPERACILLIN SODIUM\TAZOBACTAM SODIUM
     Dosage: 13.5 GRAM, QD START DATE 18-FEB-2018
     Route: 042
     Dates: end: 20180220
  179. PIPERACILLIN SODIUM\TAZOBACTAM SODIUM [Concomitant]
     Active Substance: PIPERACILLIN SODIUM\TAZOBACTAM SODIUM
     Dosage: 4.5 GRAM, Q3W START DATE 20-FEB-2018
     Route: 042
  180. PIPERACILLIN SODIUM\TAZOBACTAM SODIUM [Concomitant]
     Active Substance: PIPERACILLIN SODIUM\TAZOBACTAM SODIUM
     Dosage: 4.5 GRAM, QD, (4.5 GRAM, QD (0.33 DAY) START DATE 20-FEB-2018
     Route: 042
  181. PIPERACILLIN SODIUM\TAZOBACTAM SODIUM [Concomitant]
     Active Substance: PIPERACILLIN SODIUM\TAZOBACTAM SODIUM
     Dosage: 13.5 GRAM, QD START DATE 29-APR-2015
     Route: 042
  182. PIPERACILLIN SODIUM\TAZOBACTAM SODIUM [Concomitant]
     Active Substance: PIPERACILLIN SODIUM\TAZOBACTAM SODIUM
     Dosage: 13.4 GRAM, QD,EVERY 1 DAY START DATE 29-APR-2015
     Route: 042
  183. PIPERACILLIN SODIUM\TAZOBACTAM SODIUM [Concomitant]
     Active Substance: PIPERACILLIN SODIUM\TAZOBACTAM SODIUM
     Dosage: 4.5 GRAM, EVERY 3 DAYS/Q8HR/TID START DATE 29-APR-2015
     Route: 042
  184. PIPERACILLIN SODIUM\TAZOBACTAM SODIUM [Concomitant]
     Active Substance: PIPERACILLIN SODIUM\TAZOBACTAM SODIUM
     Dosage: 13.5 GRAM, TID, (4.5 GRAM, TID)START DATE 29-APR-2015
     Route: 042
  185. PIPERACILLIN SODIUM\TAZOBACTAM SODIUM [Concomitant]
     Active Substance: PIPERACILLIN SODIUM\TAZOBACTAM SODIUM
     Dosage: 4.5 GRAM START DATE 29-APR-2015
     Route: 042
  186. DENOSUMAB [Concomitant]
     Active Substance: DENOSUMAB
     Dosage: 120 MILLIGRAM, QD START DATE 15-JAN-2018
     Route: 048
  187. DENOSUMAB [Concomitant]
     Active Substance: DENOSUMAB
     Dosage: 240 MILLIGRAM, (120 MG, BID) START DATE 15-JAN-2018
     Route: 048
  188. DENOSUMAB [Concomitant]
     Active Substance: DENOSUMAB
     Dosage: 240 MILLIGRAM, QD, START DATE 15-JAN-2018
     Route: 048
  189. DENOSUMAB [Concomitant]
     Active Substance: DENOSUMAB
     Dosage: 120 MILLIGRAM, BID
     Route: 048
  190. DENOSUMAB [Concomitant]
     Active Substance: DENOSUMAB
     Dosage: 120 MILLIGRAM, BID START DATE 15-JAN-2018
     Route: 048
  191. DENOSUMAB [Concomitant]
     Active Substance: DENOSUMAB
     Indication: Product used for unknown indication
     Dosage: 120 MG, MONTHLY, START DATE 23-JUN-2015
     Route: 058
     Dates: end: 20170508
  192. DENOSUMAB [Concomitant]
     Active Substance: DENOSUMAB
     Dosage: 120 MILLIGRAM, MONTHLY START DATE 23-JUN-2015
     Route: 058
  193. IBUPROFEN [Concomitant]
     Active Substance: IBUPROFEN
     Indication: Arthralgia
     Dosage: 400 MILLIGRAM, QD START DATE 20-APR-2015
     Route: 048
     Dates: end: 20150426
  194. IBUPROFEN [Concomitant]
     Active Substance: IBUPROFEN
     Dosage: 200 MILLIGRAM, BID/EVERY 12 HR START DATE 20-APR-2015
     Route: 048
     Dates: end: 20150426
  195. VASELINE PURE [Concomitant]
     Active Substance: PETROLATUM
     Dosage: UNK UNK, PRN START DATE 16-AUG-2016
     Route: 061
  196. VASELINE PURE [Concomitant]
     Active Substance: PETROLATUM
     Dosage: UNK START DATE 16-AUG-2016
     Route: 061
  197. SENNA [Concomitant]
     Active Substance: SENNA LEAF\SENNOSIDES\SENNOSIDES A AND B
     Indication: Influenza
     Dosage: UNK, QD- START DATE 09-FEB-2018
     Route: 048
     Dates: end: 20180220
  198. SENNA [Concomitant]
     Active Substance: SENNA LEAF\SENNOSIDES\SENNOSIDES A AND B
     Dosage: 1 SACHET, QD START DATE 19-FEB-2018
     Route: 048
     Dates: end: 20180220
  199. SENNA [Concomitant]
     Active Substance: SENNA LEAF\SENNOSIDES\SENNOSIDES A AND B
     Dosage: SOLUTION, QD START DATE 19-FEB-2018
     Route: 048
     Dates: end: 20180220
  200. SENNA [Concomitant]
     Active Substance: SENNA LEAF\SENNOSIDES\SENNOSIDES A AND B
     Dosage: 1 DOSAGE FORM, QD, (1 SACHET) START DATE 19-FEB-2018
     Route: 048
     Dates: end: 20180220
  201. SENNA [Concomitant]
     Active Substance: SENNA LEAF\SENNOSIDES\SENNOSIDES A AND B
     Dosage: UNK1 OTHER (1, EVEY 1 DAY) START DATE 19-FEB-2018
     Route: 048
     Dates: end: 20180220
  202. RANITIDINE [Concomitant]
     Active Substance: RANITIDINE
     Dosage: 300 MILLIGRAM, QD START DATE 21-APR-2015
     Route: 048
  203. RANITIDINE [Concomitant]
     Active Substance: RANITIDINE
     Dosage: 150 MILLIGRAM, QD START DATE 21-APR-2015
     Route: 048
  204. RANITIDINE [Concomitant]
     Active Substance: RANITIDINE
     Dosage: 150 MILLIGRAM, BID START DATE 21-APR-2015
     Route: 048
  205. AMOXICILLIN\CLAVULANATE POTASSIUM [Concomitant]
     Active Substance: AMOXICILLIN\CLAVULANATE POTASSIUM
     Indication: Influenza
     Dosage: 625 MILLIGRAM, QD  25-FEB-2018
     Route: 048
     Dates: end: 20180225
  206. AMOXICILLIN\CLAVULANATE POTASSIUM [Concomitant]
     Active Substance: AMOXICILLIN\CLAVULANATE POTASSIUM
     Dosage: 1875 MILLIGRAM, QD START DATE 25-FEB-2018
     Route: 048
     Dates: start: 20180225, end: 20180225
  207. AMOXICILLIN\CLAVULANATE POTASSIUM [Concomitant]
     Active Substance: AMOXICILLIN\CLAVULANATE POTASSIUM
     Dosage: 625 MILLIGRAM, Q3W START DATE 25-FEB-2018
     Route: 048
  208. AMOXICILLIN\CLAVULANATE POTASSIUM [Concomitant]
     Active Substance: AMOXICILLIN\CLAVULANATE POTASSIUM
     Dosage: UNK, EVERY 0.3 DAY
     Route: 048
     Dates: start: 20180220, end: 20180225
  209. AMOXICILLIN\CLAVULANATE POTASSIUM [Concomitant]
     Active Substance: AMOXICILLIN\CLAVULANATE POTASSIUM
     Dosage: 625 MILLIGRAM, 625 MG, 0.33 DAY
     Route: 048
     Dates: start: 20180225
  210. AMOXICILLIN\CLAVULANATE POTASSIUM [Concomitant]
     Active Substance: AMOXICILLIN\CLAVULANATE POTASSIUM
     Dosage: UNK, 625 MG, EVERY 1 DAY (CUMULATIVE DOSE: 648151.06 MG; DOSE FORM: 245)
     Route: 048
     Dates: start: 20180220, end: 20180225
  211. AMOXICILLIN\CLAVULANATE POTASSIUM [Concomitant]
     Active Substance: AMOXICILLIN\CLAVULANATE POTASSIUM
     Dosage: UNK,1875 MILLIGRAM, QD CUMULATIVE DOSE TO FIRST REA
     Route: 048
     Dates: start: 20180225, end: 20180225
  212. AMOXICILLIN\CLAVULANATE POTASSIUM [Concomitant]
     Active Substance: AMOXICILLIN\CLAVULANATE POTASSIUM
     Dosage: UNK,625 MG, EVERY 1 DAY (CUMULATIVE DOSE: 648151.0
     Route: 048
     Dates: start: 20180220, end: 20180225
  213. AMOXICILLIN\CLAVULANATE POTASSIUM [Concomitant]
     Active Substance: AMOXICILLIN\CLAVULANATE POTASSIUM
     Dosage: 625 MILLIGRAM, 625 MG, EVERY 1 DAY (DOSAGE FORM
     Route: 048
     Dates: start: 20180220, end: 20180225
  214. AMOXICILLIN\CLAVULANATE POTASSIUM [Concomitant]
     Active Substance: AMOXICILLIN\CLAVULANATE POTASSIUM
     Dosage: UNK,UNK UNK, QD/EVERY 1 DAY
     Route: 048
     Dates: start: 20180220, end: 20180225
  215. AMOXICILLIN\CLAVULANATE POTASSIUM [Concomitant]
     Active Substance: AMOXICILLIN\CLAVULANATE POTASSIUM
     Dosage: 625 MILLIGRAM, 625 MG, QD CUMULATIVE DOSE TO FIRST
     Route: 048
     Dates: start: 20180220, end: 20180225
  216. AMOXICILLIN\CLAVULANATE POTASSIUM [Concomitant]
     Active Substance: AMOXICILLIN\CLAVULANATE POTASSIUM
     Dosage: UNK
     Route: 048
     Dates: start: 20180220, end: 20180225
  217. AMOXICILLIN\CLAVULANATE POTASSIUM [Concomitant]
     Active Substance: AMOXICILLIN\CLAVULANATE POTASSIUM
     Dosage: 1875 MILLIGRAM, 1875 MG QD CUMULATIVE DOSE TO FIRST
     Route: 048
     Dates: start: 20180220, end: 20180225
  218. AMOXICILLIN\CLAVULANATE POTASSIUM [Concomitant]
     Active Substance: AMOXICILLIN\CLAVULANATE POTASSIUM
     Dosage: 625 MILLIGRAM, 625 MG, Q8H/TID
     Route: 048
     Dates: start: 20180220, end: 20180225
  219. AMOXICILLIN\CLAVULANATE POTASSIUM [Concomitant]
     Active Substance: AMOXICILLIN\CLAVULANATE POTASSIUM
     Dosage: UNK, ~3, EVERY 1 DAY (DOSE FORM: 245)
     Route: 048
     Dates: start: 20180220, end: 20180225
  220. AMOXICILLIN\CLAVULANATE POTASSIUM [Concomitant]
     Active Substance: AMOXICILLIN\CLAVULANATE POTASSIUM
     Dosage: 625 MILLIGRAM, ~625 MILLIGRAM, QD
     Route: 048
     Dates: start: 20180220, end: 20180225
  221. AVEENO [Concomitant]
     Active Substance: DIMETHICONE\HOMOSALATE\OCTINOXATE\OCTISALATE\TITANIUM DIOXIDE
     Indication: Eczema
     Dosage: UNK, (DOSE FORM: 17) START DATE 14-JAN-2019
     Route: 061
  222. AVEENO [Concomitant]
     Active Substance: DIMETHICONE\HOMOSALATE\OCTINOXATE\OCTISALATE\TITANIUM DIOXIDE
     Dosage: UNK
     Route: 061
     Dates: start: 20190114
  223. HYDROCORTISONE [Concomitant]
     Active Substance: HYDROCORTISONE
     Indication: Eczema
     Dosage: 1% CREAM, 1 DROP
     Route: 065
  224. HYDROCORTISONE [Concomitant]
     Active Substance: HYDROCORTISONE
     Dosage: UNK, PRN
     Route: 061
  225. HYDROCORTISONE [Concomitant]
     Active Substance: HYDROCORTISONE
     Dosage: UNK DROP
     Route: 061
  226. HYDROCORTISONE [Concomitant]
     Active Substance: HYDROCORTISONE
     Dosage: UNK
     Route: 065
  227. HYDROCORTISONE [Concomitant]
     Active Substance: HYDROCORTISONE
     Dosage: 400 MILLIGRAM
     Route: 065
     Dates: start: 20161229
  228. HYDROCORTISONE [Concomitant]
     Active Substance: HYDROCORTISONE
     Dosage: 400 MILLIGRAM START DATE 29-DEC-2016
     Route: 048
  229. SODIUM CHLORIDE [Concomitant]
     Active Substance: SODIUM CHLORIDE
     Indication: Ovarian cyst
     Dosage: 1000 MILLILITER, PRN, (0.9%, AS NEEDED) START DATE 25-JAN-2016
     Route: 042
     Dates: end: 20160125
  230. SODIUM CHLORIDE [Concomitant]
     Active Substance: SODIUM CHLORIDE
     Dosage: 1000 MILLILITER, PRN (0.9%, AS NEEDED) START DATE 25-JAN-2016
     Route: 042
     Dates: end: 20160125
  231. SODIUM CHLORIDE [Concomitant]
     Active Substance: SODIUM CHLORIDE
     Dosage: 1000 ML, AS NECESSARY START DATE 25-JAN-2016
     Route: 042
     Dates: end: 20160125
  232. CODEINE [Concomitant]
     Active Substance: CODEINE
     Indication: Arthralgia
     Dosage: 30 MILLIGRAM, PRN START DATE 21-DEC-2015
     Route: 048
     Dates: end: 20160425
  233. CODEINE [Concomitant]
     Active Substance: CODEINE
     Dosage: 30 MILLIGRAM START DATE 21-DEC-2015
     Route: 048
     Dates: end: 20160425
  234. CODEINE [Concomitant]
     Active Substance: CODEINE
     Dosage: UNK UNK, PRN START DATE 21-DEC-2015
     Route: 048
     Dates: end: 20160425
  235. CODEINE [Concomitant]
     Active Substance: CODEINE
     Dosage: UNK START DATE 21-DEC-2015
     Route: 048
     Dates: end: 20160425
  236. CODEINE [Concomitant]
     Active Substance: CODEINE
     Dosage: UNK
     Route: 048
  237. CODEINE [Concomitant]
     Active Substance: CODEINE
     Dosage: 30 MG (DOSE FORM: 245)
     Route: 048
     Dates: end: 20160425
  238. ALTHAEA OFFICINALIS EXTRACT [Concomitant]
     Indication: Eczema
     Dosage: UNK START DATE 12-NOV-2018
     Route: 061
     Dates: start: 20181112
  239. ALTHAEA OFFICINALIS EXTRACT [Concomitant]
     Dosage: AQUEOUS EXTRACT FROM ALTHAEA OFFIC RAD
     Route: 065
  240. ALTHAEA OFFICINALIS EXTRACT [Concomitant]
     Dosage: UNK,(DOSE FORM: 17)
     Route: 061
     Dates: start: 20181112
  241. GAVISCON [Concomitant]
     Active Substance: ALUMINUM HYDROXIDE\MAGNESIUM CARBONATE
     Indication: Gastrooesophageal reflux disease
     Dosage: 20 MILLILITER, PRN START DATE MAY-2015
     Route: 048
  242. GAVISCON [Concomitant]
     Active Substance: ALUMINUM HYDROXIDE\MAGNESIUM CARBONATE
     Dosage: UNK
     Route: 065
  243. GAVISCON [Concomitant]
     Active Substance: ALUMINUM HYDROXIDE\MAGNESIUM CARBONATE
     Dosage: 20 MILLIGRAM, ~20 MILLIGRAM, AS NECESSARY
     Route: 048
     Dates: start: 201505
  244. DOMPERIDONE [Concomitant]
     Active Substance: DOMPERIDONE
     Indication: Nausea
     Dosage: 10 MILLIGRAM START DATE 20-APR-2015
     Route: 048
     Dates: end: 20150427
  245. DOMPERIDONE [Concomitant]
     Active Substance: DOMPERIDONE
     Dosage: 10 MILLIGRAM, TID START DATE 20-APR-2015
     Route: 048
     Dates: end: 20150427
  246. DOMPERIDONE [Concomitant]
     Active Substance: DOMPERIDONE
     Dosage: 30 MILLIGRAM, (10 MG, TID) START DATE 20-APR-2015
     Route: 048
     Dates: end: 20150427
  247. DOMPERIDONE [Concomitant]
     Active Substance: DOMPERIDONE
     Dosage: 10 MILLIGRAM, Q3D START DATE 20-APR-2015
     Route: 048
     Dates: end: 20150427
  248. DOMPERIDONE [Concomitant]
     Active Substance: DOMPERIDONE
     Dosage: 10 MILLIGRAM, 10 MG, QD
     Route: 065
     Dates: start: 20150420, end: 20150427
  249. DOMPERIDONE [Concomitant]
     Active Substance: DOMPERIDONE
     Dosage: 30 MILLIGRAM, 10 MG, TID (DOSE FORM:245)
     Route: 048
     Dates: start: 20150420, end: 20150427
  250. AMOXIL [Concomitant]
     Active Substance: AMOXICILLIN
     Indication: Chest pain
     Dosage: 625 MG, EVERY 1 DAY START DATE 20-FEB-2018
     Route: 048
     Dates: end: 20180225
  251. AMOXIL [Concomitant]
     Active Substance: AMOXICILLIN
     Dosage: 6625 MG, (1875 MG, QD) START DATE 25-FEB-2018
     Route: 048
  252. AMOXIL [Concomitant]
     Active Substance: AMOXICILLIN
     Dosage: UNK START DATE 27-DEC-2017
     Route: 065
     Dates: end: 20180102
  253. AMOXIL [Concomitant]
     Active Substance: AMOXICILLIN
     Dosage: 500 MILLIGRAM, QD START DATE 27-DEC-2017
     Route: 048
     Dates: end: 20180102
  254. MEGESTROL ACETATE [Concomitant]
     Active Substance: MEGESTROL ACETATE
     Indication: Menopausal symptoms
     Dosage: 80 MILLIGRAM, QD START DATE 01-JUN-2015
     Route: 048
     Dates: start: 20150601
  255. MEGESTROL ACETATE [Concomitant]
     Active Substance: MEGESTROL ACETATE
     Dosage: 80 MILLIGRAM, 80 MILLIGRAM
     Route: 048
     Dates: start: 20150601
  256. MEGESTROL ACETATE [Concomitant]
     Active Substance: MEGESTROL ACETATE
     Dosage: 80 MILLIGRAM, 80 MG, QD/ EVERY 1 DAY (DOSE FORM: 245)
     Route: 048
     Dates: start: 20150601
  257. ALGINIC ACID [Concomitant]
     Active Substance: ALGINIC ACID
     Dosage: UNK, (ADDITIONAL INFO: GAVISCON)
     Route: 065
  258. MINERAL OIL [Concomitant]
     Active Substance: MINERAL OIL
     Dosage: UNK START DATE : 12-NOV-2018
     Route: 061

REACTIONS (27)
  - Gastritis [Recovered/Resolved]
  - Dry eye [Unknown]
  - Dry skin [Not Recovered/Not Resolved]
  - Sleep disorder [Unknown]
  - Lethargy [Not Recovered/Not Resolved]
  - Gastrooesophageal reflux disease [Recovered/Resolved]
  - Glossodynia [Unknown]
  - Night sweats [Not Recovered/Not Resolved]
  - Mood swings [Recovered/Resolved]
  - Neutropenic sepsis [Recovered/Resolved]
  - Ovarian cyst [Recovered/Resolved]
  - Eczema [Recovered/Resolved]
  - Hypoaesthesia oral [Recovered/Resolved]
  - Decreased appetite [Recovered/Resolved]
  - Headache [Recovered/Resolved]
  - Dysgeusia [Recovered/Resolved]
  - Rash [Recovered/Resolved]
  - Nausea [Recovered/Resolved]
  - Arthralgia [Recovered/Resolved with Sequelae]
  - Abdominal pain [Recovered/Resolved]
  - Constipation [Recovered/Resolved]
  - Epistaxis [Not Recovered/Not Resolved]
  - Diarrhoea [Recovered/Resolved]
  - Influenza [Recovered/Resolved]
  - Pruritus [Recovered/Resolved]
  - Off label use [Unknown]
  - Intentional product misuse [Unknown]

NARRATIVE: CASE EVENT DATE: 20150420
